FAERS Safety Report 7698891-4 (Version None)
Quarter: 2011Q3

REPORT INFORMATION
  Report Type: 
  Country: None (occurrence: None)
  Receive Date: 20110819
  Receipt Date: 20110817
  Transmission Date: 20111222
  Serious: Yes (Life-Threatening, Other)
  Sender: FDA-Public Use
  Company Number: PHHY2010AU54254

PATIENT
  Sex: Female

DRUGS (15)
  1. LASIX [Concomitant]
     Indication: CARDIAC DISORDER
     Dosage: UNK UKN, UNK
  2. DIGOXIN [Concomitant]
     Indication: CARDIAC DISORDER
     Dosage: UNK UKN, UNK
  3. DIGOXIN [Concomitant]
     Indication: PULMONARY HYPERTENSION
  4. PREDNISONE [Concomitant]
     Indication: POLYMYALGIA RHEUMATICA
     Dosage: 5 MG, DAILY
     Route: 048
  5. ZOLEDRONOC ACID [Suspect]
     Indication: OSTEOPOROSIS
     Dosage: UNK
     Route: 042
     Dates: start: 20080101
  6. LASIX [Concomitant]
     Indication: PULMONARY HYPERTENSION
  7. CLOPIDOGREL [Concomitant]
     Indication: CARDIAC DISORDER
     Dosage: UNK UKN, UNK
  8. ZOCOR [Concomitant]
     Indication: PULMONARY HYPERTENSION
  9. LEXAPRO [Concomitant]
     Indication: CARDIAC DISORDER
     Dosage: UNK UKN, UNK
  10. LEXAPRO [Concomitant]
     Indication: PULMONARY HYPERTENSION
  11. ZOLEDRONOC ACID [Suspect]
     Dosage: 2.5 MG, UNK
     Route: 042
     Dates: start: 20090601
  12. SOTALOL HCL [Concomitant]
     Indication: PULMONARY HYPERTENSION
  13. WARFARIN SODIUM [Concomitant]
     Indication: CARDIAC DISORDER
     Dosage: UNK UKN, UNK
  14. ZOCOR [Concomitant]
     Indication: CARDIAC DISORDER
     Dosage: UNK UKN, UNK
  15. SOTALOL HCL [Concomitant]
     Indication: CARDIAC DISORDER
     Dosage: UNK UKN, UNK

REACTIONS (3)
  - CEREBROVASCULAR ACCIDENT [None]
  - CHEST PAIN [None]
  - PALPITATIONS [None]
